FAERS Safety Report 8911441 (Version 1)
Quarter: 2012Q4

REPORT INFORMATION
  Report Type: 
  Country: PT (occurrence: PT)
  Receive Date: 20121116
  Receipt Date: 20121116
  Transmission Date: 20130627
  Serious: Yes (Death)
  Sender: FDA-Public Use
  Company Number: PT-MILLENNIUM PHARMACEUTICALS, INC.-2012-07962

PATIENT

DRUGS (6)
  1. VELCADE [Suspect]
     Indication: MULTIPLE MYELOMA
     Dosage: 1.3 mg/m2, Cyclic
     Route: 042
  2. MELPHALAN [Concomitant]
     Indication: MULTIPLE MYELOMA
     Dosage: 9 mg/m2, UNK
  3. PREDNISOLONE [Concomitant]
     Indication: MULTIPLE MYELOMA
     Dosage: 100 mg, UNK
  4. THALIDOMIDE [Concomitant]
     Indication: MULTIPLE MYELOMA
  5. DEXAMETHASONE [Concomitant]
     Indication: MULTIPLE MYELOMA
  6. ACYCLOVIR                          /00587301/ [Concomitant]
     Indication: HERPES ZOSTER

REACTIONS (2)
  - Ischaemic stroke [Fatal]
  - Neuropathy peripheral [Unknown]
